FAERS Safety Report 9693737 (Version 3)
Quarter: 2013Q4

REPORT INFORMATION
  Report Type: Report from Study
  Country: RU (occurrence: RU)
  Receive Date: 20131118
  Receipt Date: 20131118
  Transmission Date: 20140711
  Serious: Yes (Life-Threatening, Hospitalization)
  Sender: FDA-Public Use
  Company Number: PHHO2013RU012647

PATIENT
  Age: 60 Year
  Sex: Female
  Weight: 77 kg

DRUGS (4)
  1. GP2013 [Suspect]
     Indication: NON-HODGKIN^S LYMPHOMA
     Dosage: UNK
     Route: 042
     Dates: start: 20130909, end: 20130909
  2. CYCLOPHOSPHAMIDE [Suspect]
     Indication: CHEMOTHERAPY
     Dosage: 1440 MG, UNK
     Route: 042
     Dates: start: 20130909, end: 20130909
  3. VINCRISTINE [Suspect]
     Indication: CHEMOTHERAPY
     Dosage: 2 MG, UNK
     Route: 042
     Dates: start: 20130909, end: 20130909
  4. PREDNISONE [Suspect]
     Indication: CHEMOTHERAPY
     Dosage: 100 MG, QD
     Route: 048
     Dates: start: 20130909, end: 20130913

REACTIONS (2)
  - Cerebrovascular disorder [Recovered/Resolved with Sequelae]
  - Hemiparesis [Recovered/Resolved with Sequelae]
